FAERS Safety Report 9515849 (Version 1)
Quarter: 2013Q3

REPORT INFORMATION
  Report Type: Spontaneous
  Country: IN (occurrence: None)
  Receive Date: 20130909
  Receipt Date: 20130909
  Transmission Date: 20140515
  Serious: Yes (Death, Hospitalization)
  Sender: FDA-Public Use
  Company Number: 2013-15858

PATIENT
  Age: 39 Year
  Sex: Male
  Weight: 50 kg

DRUGS (2)
  1. TOPIRAMATE [Suspect]
     Route: 048
     Dates: start: 20130722, end: 20130825
  2. TOPAMAX (TOPIRAMATE) [Suspect]
     Indication: PRODUCT USED FOR UNKNOWN INDICATION
     Route: 048
     Dates: start: 20130722, end: 20130825

REACTIONS (4)
  - Pyrexia [None]
  - Oedema peripheral [None]
  - Skin erosion [None]
  - Skin discolouration [None]
